FAERS Safety Report 9089040 (Version 1)
Quarter: 2013Q1

REPORT INFORMATION
  Report Type: Spontaneous
  Country: IT (occurrence: IT)
  Receive Date: 20130131
  Receipt Date: 20130131
  Transmission Date: 20140127
  Serious: Yes (Other)
  Sender: FDA-Public Use
  Company Number: PHHY2013IT007448

PATIENT
  Age: 49 Year
  Sex: Male

DRUGS (3)
  1. OXALIPLATIN [Suspect]
     Indication: COLON CANCER
     Dosage: 170 MG, CYCLIC DOSE
     Route: 042
     Dates: start: 20120905, end: 20120921
  2. FLUOROURACIL [Suspect]
     Indication: COLON CANCER
     Dosage: 5600 MG CYCLIC DOSE
     Route: 042
     Dates: start: 20120905, end: 20120921
  3. FOLINIC ACID [Concomitant]
     Dosage: UNK UKN, UNK
     Dates: start: 20120905, end: 20120921

REACTIONS (3)
  - Cholestasis [Recovering/Resolving]
  - Gamma-glutamyltransferase increased [Recovering/Resolving]
  - Hypertransaminasaemia [Recovering/Resolving]
